FAERS Safety Report 15517689 (Version 3)
Quarter: 2019Q1

REPORT INFORMATION
  Report Type: Spontaneous
  Country: JP (occurrence: JP)
  Receive Date: 20181017
  Receipt Date: 20190116
  Transmission Date: 20190417
  Serious: Yes (Hospitalization)
  Sender: FDA-Public Use
  Company Number: JP-EISAI MEDICAL RESEARCH-EC-2018-046129

PATIENT
  Age: 89 Year
  Sex: Female
  Weight: 68 kg

DRUGS (1)
  1. LENVIMA [Suspect]
     Active Substance: LENVATINIB
     Indication: HEPATOCELLULAR CARCINOMA
     Route: 048
     Dates: start: 20180917, end: 20181002

REACTIONS (2)
  - Ascites [Unknown]
  - Malaise [Unknown]

NARRATIVE: CASE EVENT DATE: 20180927
